FAERS Safety Report 10335180 (Version 1)
Quarter: 2014Q3

REPORT INFORMATION
  Report Type: Spontaneous
  Country: IT (occurrence: IT)
  Receive Date: 20140723
  Receipt Date: 20140723
  Transmission Date: 20150326
  Serious: Yes (Other)
  Sender: FDA-Public Use
  Company Number: IT-WATSON-2014-15737

PATIENT
  Age: 37 Year
  Sex: Male
  Weight: 72 kg

DRUGS (6)
  1. LAMICTAL [Suspect]
     Active Substance: LAMOTRIGINE
     Indication: MAJOR DEPRESSION
     Dosage: 150 MG, DAILY
     Route: 048
     Dates: start: 20140430
  2. MIRTAZAPINA ACTAVIS [Suspect]
     Active Substance: MIRTAZAPINE
     Indication: MAJOR DEPRESSION
     Dosage: 45 MG, DAILY
     Route: 048
     Dates: start: 20140430
  3. DELORAZEPAM RATIOPHARM [Suspect]
     Active Substance: DELORAZEPAM
     Indication: MAJOR DEPRESSION
     Dosage: 29 GTT DROP(S), DAILY
     Route: 048
     Dates: start: 20140430
  4. FLUOXEREN [Suspect]
     Active Substance: FLUOXETINE HYDROCHLORIDE
     Indication: MAJOR DEPRESSION
     Dosage: 30 MG, DAILY
     Route: 048
     Dates: start: 20140430
  5. RISPERIDONE TEVA [Suspect]
     Active Substance: RISPERIDONE
     Indication: MAJOR DEPRESSION
     Dosage: 1 MG, DAILY
     Route: 048
     Dates: start: 20140430
  6. ACETAMOL                           /00020001/ [Concomitant]
     Active Substance: ACETAMINOPHEN
     Indication: PYREXIA
     Dosage: 2 G, UNK
     Route: 048

REACTIONS (2)
  - Drug interaction [Recovered/Resolved with Sequelae]
  - Pyrexia [Recovered/Resolved with Sequelae]

NARRATIVE: CASE EVENT DATE: 20140501
